FAERS Safety Report 12375661 (Version 1)
Quarter: 2016Q2

REPORT INFORMATION
  Report Type: Spontaneous
  Country: JP (occurrence: JP)
  Receive Date: 20160517
  Receipt Date: 20160517
  Transmission Date: 20160815
  Serious: Yes (Other)
  Sender: FDA-Public Use
  Company Number: JP-009507513-1605JPN008198

PATIENT
  Sex: Female

DRUGS (5)
  1. GLACTIV [Suspect]
     Active Substance: SITAGLIPTIN
     Dosage: UNK
     Route: 048
  2. CLARITHROMYCIN. [Concomitant]
     Active Substance: CLARITHROMYCIN
     Dosage: UNK
  3. LOXOPROFEN SODIUM [Concomitant]
     Active Substance: LOXOPROFEN SODIUM
     Dosage: UNK
  4. ALPRAZOLAM. [Suspect]
     Active Substance: ALPRAZOLAM
     Dosage: 0.4 MG, DAILY
     Route: 048
  5. PITAVASTATIN CALCIUM [Suspect]
     Active Substance: PITAVASTATIN CALCIUM
     Dosage: UNK
     Route: 048

REACTIONS (4)
  - Drug dependence [Unknown]
  - Palpitations [Unknown]
  - Cystitis [Unknown]
  - Dizziness [Unknown]
